FAERS Safety Report 12630463 (Version 2)
Quarter: 2016Q3

REPORT INFORMATION
  Report Type: Spontaneous
  Country: US (occurrence: US)
  Receive Date: 20160808
  Receipt Date: 20160818
  Transmission Date: 20161109
  Serious: No
  Sender: FDA-Public Use
  Company Number: US-PFIZER INC-2016340222

PATIENT
  Sex: Male

DRUGS (2)
  1. METHOTREXATE. [Concomitant]
     Active Substance: METHOTREXATE
     Dosage: UNK
  2. XELJANZ XR [Suspect]
     Active Substance: TOFACITINIB CITRATE
     Dosage: 11 MG, DAILY
     Route: 048

REACTIONS (15)
  - Tendon rupture [Unknown]
  - Chest pain [Unknown]
  - Sputum discoloured [Unknown]
  - Gait disturbance [Unknown]
  - Upper respiratory tract infection [Unknown]
  - Arthralgia [Unknown]
  - Dysstasia [Unknown]
  - Peripheral swelling [Unknown]
  - Productive cough [Unknown]
  - Asthenia [Unknown]
  - Pain [Unknown]
  - Drug ineffective [Unknown]
  - Impaired work ability [Unknown]
  - Pain in extremity [Unknown]
  - Cough [Unknown]
